FAERS Safety Report 24444123 (Version 1)
Quarter: 2024Q4

REPORT INFORMATION
  Report Type: Spontaneous
  Country: US (occurrence: US)
  Receive Date: 20241016
  Receipt Date: 20241016
  Transmission Date: 20250115
  Serious: No
  Sender: SANDOZ
  Company Number: US-002147023-NVSC2024US011342

PATIENT
  Age: 54 Year
  Sex: Female

DRUGS (1)
  1. COMBIPATCH [Suspect]
     Active Substance: ESTRADIOL\NORETHINDRONE ACETATE
     Indication: Product used for unknown indication
     Dosage: 0.05/0.14 MG, UNK
     Route: 062

REACTIONS (4)
  - Skin irritation [Unknown]
  - Application site pruritus [Unknown]
  - Application site rash [Unknown]
  - Application site erythema [Unknown]

NARRATIVE: CASE EVENT DATE: 20240110
